FAERS Safety Report 4613711-X (Version None)
Quarter: 2005Q1

REPORT INFORMATION
  Report Type: 
  Country: None (occurrence: None)
  Receive Date: 20050315
  Receipt Date: 20050225
  Transmission Date: 20050727
  Serious: No
  Sender: FDA-Public Use
  Company Number: 10441

PATIENT
  Age: 10 Year
  Sex: Female

DRUGS (1)
  1. METHOTREXATE [Suspect]
     Indication: JUVENILE ARTHRITIS
     Dosage: 7.5 MG WEEKLY PO
     Route: 048
     Dates: start: 20031023

REACTIONS (1)
  - INFLUENZA [None]
